FAERS Safety Report 11026372 (Version 1)
Quarter: 2015Q2

REPORT INFORMATION
  Report Type: Spontaneous
  Country: US (occurrence: US)
  Receive Date: 20150414
  Receipt Date: 20150414
  Transmission Date: 20150821
  Serious: Yes (Other)
  Sender: FDA-Public Use
  Company Number: US-TEVA-554891USA

PATIENT
  Age: 32 Year
  Sex: Female
  Weight: 55.84 kg

DRUGS (1)
  1. PARAGARD T 380A [Suspect]
     Active Substance: COPPER
     Indication: CONTRACEPTION
     Route: 015
     Dates: start: 20150210

REACTIONS (5)
  - Discomfort [Unknown]
  - Pain [Recovered/Resolved]
  - Device dislocation [Not Recovered/Not Resolved]
  - Abdominal pain lower [Unknown]
  - Vaginal haemorrhage [Unknown]

NARRATIVE: CASE EVENT DATE: 20150210
